FAERS Safety Report 9506976 (Version 1)
Quarter: 2013Q3

REPORT INFORMATION
  Report Type: Spontaneous
  Country: US (occurrence: US)
  Receive Date: 20130909
  Receipt Date: 20130909
  Transmission Date: 20140515
  Serious: No
  Sender: FDA-Public Use
  Company Number: US-BAYER-2013-107217

PATIENT
  Age: 25 Year
  Sex: Female
  Weight: 61.68 kg

DRUGS (1)
  1. ALEVE GELCAPS [Suspect]
     Indication: PAIN
     Dosage: 2 DF, PRN
     Route: 048
     Dates: start: 20130830, end: 20130830

REACTIONS (3)
  - Rash macular [Not Recovered/Not Resolved]
  - Extra dose administered [None]
  - Drug ineffective [None]
